FAERS Safety Report 5001786-8 (Version None)
Quarter: 2006Q2

REPORT INFORMATION
  Report Type: 
  Country: None (occurrence: None)
  Receive Date: 20060512
  Receipt Date: 20060512
  Transmission Date: 20061013
  Serious: No
  Sender: FDA-Public Use
  Company Number: None

PATIENT
  Sex: Female
  Weight: 45.3597 kg

DRUGS (1)
  1. PAXIL [Suspect]
     Indication: DEPRESSION

REACTIONS (3)
  - AGEUSIA [None]
  - ANOSMIA [None]
  - WEIGHT DECREASED [None]
